FAERS Safety Report 5194126-5 (Version None)
Quarter: 2006Q4

REPORT INFORMATION
  Report Type: 
  Country: None (occurrence: None)
  Receive Date: 20061220
  Receipt Date: 20061212
  Transmission Date: 20070319
  Serious: Yes (Other)
  Sender: FDA-Public Use
  Company Number: HQWYE942213DEC06

PATIENT
  Age: 58 Year
  Sex: Female
  Weight: 70.37 kg

DRUGS (3)
  1. EFFEXOR XR [Suspect]
     Indication: APATHY
     Dosage: 150 MG 1X PER 1 DAY, ORAL
     Route: 048
     Dates: start: 19990101, end: 20050101
  2. EFFEXOR XR [Suspect]
     Indication: ASTHENIA
     Dosage: 150 MG 1X PER 1 DAY, ORAL
     Route: 048
     Dates: start: 19990101, end: 20050101
  3. EFFEXOR XR [Suspect]
     Indication: DEPRESSION
     Dosage: 150 MG 1X PER 1 DAY, ORAL
     Route: 048
     Dates: start: 19990101, end: 20050101

REACTIONS (32)
  - AGGRESSION [None]
  - AGITATION [None]
  - AMNESIA [None]
  - ANGER [None]
  - BLOOD POTASSIUM ABNORMAL [None]
  - BLOOD PRESSURE INCREASED [None]
  - BURNING SENSATION [None]
  - DRUG DOSE OMISSION [None]
  - DRUG INEFFECTIVE [None]
  - DRUG WITHDRAWAL SYNDROME [None]
  - DYSPEPSIA [None]
  - DYSPNOEA [None]
  - ERUCTATION [None]
  - FEELING ABNORMAL [None]
  - FLATULENCE [None]
  - GASTROOESOPHAGEAL REFLUX DISEASE [None]
  - HALLUCINATION, VISUAL [None]
  - HUNGER [None]
  - HYPOAESTHESIA [None]
  - HYPOAESTHESIA ORAL [None]
  - MALAISE [None]
  - NEGATIVE THOUGHTS [None]
  - PANIC ATTACK [None]
  - PARAESTHESIA [None]
  - POLLAKIURIA [None]
  - SENSATION OF FOREIGN BODY [None]
  - SOCIAL AVOIDANT BEHAVIOUR [None]
  - SUICIDAL IDEATION [None]
  - THIRST [None]
  - THROAT IRRITATION [None]
  - THYROID DISORDER [None]
  - TINNITUS [None]
